FAERS Safety Report 4427086-2 (Version None)
Quarter: 2004Q3

REPORT INFORMATION
  Report Type: 
  Country: None (occurrence: None)
  Receive Date: 20040811
  Receipt Date: 20040726
  Transmission Date: 20050211
  Serious: Yes (Hospitalization, Disabling, Other)
  Sender: FDA-Public Use
  Company Number: USA040773559

PATIENT
  Age: 59 Year
  Sex: Female
  Weight: 155 kg

DRUGS (4)
  1. HUMULIN L [Suspect]
     Indication: DIABETES MELLITUS
     Dosage: 70 U/2 DAY
     Dates: start: 19860101
  2. LASIX [Concomitant]
  3. ZAROXOLYN [Concomitant]
  4. POTASSIUM CHLORIDE [Concomitant]

REACTIONS (12)
  - BLINDNESS UNILATERAL [None]
  - CARDIAC FAILURE CONGESTIVE [None]
  - CATARACT OPERATION [None]
  - DIFFICULTY IN WALKING [None]
  - EYE HAEMORRHAGE [None]
  - FATIGUE [None]
  - IMPAIRED WORK ABILITY [None]
  - MEMORY IMPAIRMENT [None]
  - PHARMACEUTICAL PRODUCT COMPLAINT [None]
  - SLEEP APNOEA SYNDROME [None]
  - STRESS SYMPTOMS [None]
  - VISUAL ACUITY REDUCED [None]
